FAERS Safety Report 7658405-1 (Version None)
Quarter: 2011Q3

REPORT INFORMATION
  Report Type: 
  Country: None (occurrence: None)
  Receive Date: 20110802
  Receipt Date: 20110718
  Transmission Date: 20111222
  Serious: Yes (Hospitalization)
  Sender: FDA-Public Use
  Company Number: LTI2011A00187

PATIENT
  Age: 80 Year
  Sex: Male

DRUGS (7)
  1. ACTOS [Suspect]
     Indication: TYPE 2 DIABETES MELLITUS
     Dosage: 30 MG (30 MG,1 IN 1 D) PER ORAL
     Route: 048
     Dates: start: 20080627, end: 20110601
  2. COVERAM (PERINDOPRIL, AMLODIPINE)(ANTIBYPERTENSIVES) [Concomitant]
  3. AMARYL [Concomitant]
  4. LASILIX (FDROSEMIDE) [Suspect]
  5. PANTOPRAZOLE [Concomitant]
  6. ASPIRIN [Concomitant]
  7. SECTRAL (ACEBDTOLOL HYDROCHLORIDE) [Concomitant]

REACTIONS (3)
  - HAEMATURIA [None]
  - BLADDER TRANSITIONAL CELL CARCINOMA [None]
  - URINARY BLADDER POLYP [None]
